FAERS Safety Report 4506030-3 (Version None)
Quarter: 2004Q4

REPORT INFORMATION
  Report Type: 
  Country: None (occurrence: None)
  Receive Date: 20041025
  Receipt Date: 20040601
  Transmission Date: 20050328
  Serious: Yes (Other)
  Sender: FDA-Public Use
  Company Number: US-JNJFOC-20030704508

PATIENT
  Age: 38 Year
  Sex: Male
  Weight: 73.0291 kg

DRUGS (6)
  1. REMICADE [Suspect]
     Indication: CROHN'S DISEASE
     Dosage: INTRAVENOUS; SEE IMAGE
     Route: 042
     Dates: start: 20030224
  2. REMICADE [Suspect]
     Indication: CROHN'S DISEASE
     Dosage: INTRAVENOUS; SEE IMAGE
     Route: 042
     Dates: start: 20030310
  3. REMICADE [Suspect]
     Indication: CROHN'S DISEASE
     Dosage: INTRAVENOUS; SEE IMAGE
     Route: 042
     Dates: start: 20030421
  4. REMICADE [Suspect]
     Indication: CROHN'S DISEASE
     Dosage: INTRAVENOUS; SEE IMAGE
     Route: 042
     Dates: start: 20030616
  5. IMURAN [Concomitant]
  6. SYNTHROID [Concomitant]

REACTIONS (3)
  - ARTHRALGIA [None]
  - AUTOIMMUNE HEPATITIS [None]
  - MUSCULOSKELETAL STIFFNESS [None]
